FAERS Safety Report 9970699 (Version 1)
Quarter: 2014Q1

REPORT INFORMATION
  Report Type: Report from Study
  Country: US (occurrence: US)
  Receive Date: 20140306
  Receipt Date: 20140306
  Transmission Date: 20141002
  Serious: No
  Sender: FDA-Public Use
  Company Number: US-ABBVIE-13P-163-1149039-00

PATIENT
  Age: 60 Year
  Sex: Male

DRUGS (6)
  1. HUMIRA [Suspect]
     Indication: CROHN^S DISEASE
     Route: 058
     Dates: start: 20130805
  2. PREVACID [Concomitant]
     Indication: GASTROOESOPHAGEAL REFLUX DISEASE
     Dosage: 30 MG DAILY
  3. DICYCLOMINE [Concomitant]
     Indication: ABDOMINAL PAIN UPPER
     Dosage: 20 MG DAILY
  4. ZOFRAN [Concomitant]
     Indication: NAUSEA
  5. COMPRO [Concomitant]
     Indication: VOMITING
     Dosage: SUPPOSITORIES
  6. MARINOL [Concomitant]
     Indication: INCREASED APPETITE

REACTIONS (1)
  - Drug ineffective [Not Recovered/Not Resolved]
